FAERS Safety Report 8395610-3 (Version None)
Quarter: 2012Q2

REPORT INFORMATION
  Report Type: 
  Country: None (occurrence: None)
  Receive Date: 20120530
  Receipt Date: 20111111
  Transmission Date: 20120825
  Serious: No
  Sender: FDA-Public Use
  Company Number: US-GLAXOSMITHKLINE-A0953566A

PATIENT
  Age: 53 Year
  Sex: Female

DRUGS (2)
  1. VENTOLIN [Suspect]
     Dosage: 90MCG UNKNOWN
     Route: 065
     Dates: start: 20090121
  2. ADVAIR DISKUS 100/50 [Suspect]
     Route: 065

REACTIONS (1)
  - DYSPNOEA [None]
